FAERS Safety Report 8580645-8 (Version None)
Quarter: 2012Q3

REPORT INFORMATION
  Report Type: 
  Country: None (occurrence: None)
  Receive Date: 20120809
  Receipt Date: 20120731
  Transmission Date: 20120928
  Serious: Yes (Hospitalization)
  Sender: FDA-Public Use
  Company Number: US-BIOGENIDEC-2011BI039936

PATIENT
  Sex: Female

DRUGS (8)
  1. AMPYRA [Concomitant]
     Indication: BALANCE DISORDER
     Dates: start: 20101013
  2. AVONEX [Suspect]
     Indication: MULTIPLE SCLEROSIS
     Route: 030
     Dates: start: 19980801, end: 20030101
  3. AMPYRA [Concomitant]
     Dates: start: 20110101
  4. AMPYRA [Concomitant]
     Dates: start: 20110101, end: 20110401
  5. AMPYRA [Concomitant]
     Indication: GAIT DISTURBANCE
     Dates: start: 20101013
  6. AMPYRA [Concomitant]
     Dates: start: 20110101, end: 20110401
  7. AVONEX [Suspect]
     Route: 030
     Dates: start: 20030101
  8. AMPYRA [Concomitant]
     Dates: start: 20110101

REACTIONS (4)
  - NODULE [None]
  - NUCLEAR MAGNETIC RESONANCE IMAGING BREAST ABNORMAL [None]
  - BREAST CANCER [None]
  - HERPES ZOSTER [None]
